FAERS Safety Report 9201552 (Version 1)
Quarter: 2013Q2

REPORT INFORMATION
  Report Type: Spontaneous
  Country: US (occurrence: US)
  Receive Date: 20130401
  Receipt Date: 20130401
  Transmission Date: 20140414
  Serious: Yes (Hospitalization)
  Sender: FDA-Public Use
  Company Number: US-BAYER-2013-037723

PATIENT
  Age: 31 Year
  Sex: Female
  Weight: 140 kg

DRUGS (7)
  1. YASMIN [Suspect]
     Dosage: UNK
     Dates: end: 200309
  2. GENTAK [Concomitant]
     Dosage: 3 MG, UNK
     Route: 047
     Dates: start: 20030516
  3. ASPIRIN [Concomitant]
     Indication: PAIN
     Dosage: UNK
     Route: 048
     Dates: start: 20030911
  4. LUPRON [Concomitant]
     Indication: ENDOMETRIOSIS
     Dosage: UNK
     Route: 030
     Dates: start: 200306
  5. MOTRIN [Concomitant]
  6. COLACE [Concomitant]
  7. LORTAB [Concomitant]

REACTIONS (1)
  - Pulmonary embolism [Recovered/Resolved]
